FAERS Safety Report 5674585-1 (Version None)
Quarter: 2008Q1

REPORT INFORMATION
  Report Type: 
  Country: None (occurrence: None)
  Receive Date: 20080320
  Receipt Date: 20080310
  Transmission Date: 20080703
  Serious: Yes (Hospitalization)
  Sender: FDA-Public Use
  Company Number: US-JNJFOC-20080302666

PATIENT
  Sex: Female
  Weight: 61.69 kg

DRUGS (5)
  1. FENTANYL TRANSDERMAL SYSTEM [Suspect]
     Indication: PAIN
     Route: 062
  2. FENTANYL TRANSDERMAL SYSTEM [Suspect]
     Indication: PAIN
     Route: 062
  3. LORTAB [Concomitant]
     Indication: PAIN
     Dosage: 10/750 MG
     Route: 048
  4. SOMA [Concomitant]
     Indication: PAIN IN EXTREMITY
     Route: 048
  5. LYRICA [Concomitant]
     Indication: MUSCLE SPASMS
     Route: 048

REACTIONS (9)
  - APPLICATION SITE RASH [None]
  - BACK PAIN [None]
  - DRUG ADMINISTERED AT INAPPROPRIATE SITE [None]
  - DRUG INEFFECTIVE [None]
  - GALLBLADDER OPERATION [None]
  - HYPERTENSION [None]
  - PHARMACEUTICAL PRODUCT COMPLAINT [None]
  - TREATMENT NONCOMPLIANCE [None]
  - WITHDRAWAL SYNDROME [None]
